FAERS Safety Report 9125215 (Version 1)
Quarter: 2013Q1

REPORT INFORMATION
  Report Type: Spontaneous
  Country: GB (occurrence: GB)
  Receive Date: 20130227
  Receipt Date: 20130227
  Transmission Date: 20140127
  Serious: Yes (Other)
  Sender: FDA-Public Use
  Company Number: GB-ABBOTT-13P-167-1054975-00

PATIENT
  Age: 51 Year
  Sex: Male
  Weight: 89 kg

DRUGS (2)
  1. REMIFENTANIL [Suspect]
     Indication: ANAESTHESIA
  2. ISOFLURANE [Suspect]
     Indication: ANAESTHESIA

REACTIONS (3)
  - Rhabdomyolysis [Recovered/Resolved]
  - Hypoperfusion [Recovered/Resolved]
  - Decubitus ulcer [Recovered/Resolved]
